FAERS Safety Report 6635846-2 (Version None)
Quarter: 2010Q1

REPORT INFORMATION
  Report Type: 
  Country: None (occurrence: None)
  Receive Date: 20100311
  Receipt Date: 20100224
  Transmission Date: 20100710
  Serious: Yes (Hospitalization, Other)
  Sender: FDA-Public Use
  Company Number: TPA2010A00864

PATIENT
  Sex: Female

DRUGS (6)
  1. PREVACID [Suspect]
     Indication: GASTROOESOPHAGEAL REFLUX DISEASE
     Dosage: 30 MG, EVERY MORNING, PER ORAL
     Route: 048
     Dates: start: 20000224, end: 20091201
  2. AMLODIPINE [Concomitant]
  3. ATENOLOL [Concomitant]
  4. LORAZEPAM [Concomitant]
  5. SIMVASTATIN [Concomitant]
  6. ASPIRIN [Concomitant]

REACTIONS (2)
  - RENAL ARTERY OCCLUSION [None]
  - RENAL ATROPHY [None]
